FAERS Safety Report 17123027 (Version 2)
Quarter: 2021Q2

REPORT INFORMATION
  Report Type: Spontaneous
  Country: US (occurrence: US)
  Receive Date: 20191206
  Receipt Date: 20210602
  Transmission Date: 20210716
  Serious: No
  Sender: FDA-Public Use
  Company Number: US-ROCHE-2294269

PATIENT
  Sex: Female
  Weight: 66.2 kg

DRUGS (3)
  1. OCREVUS [Suspect]
     Active Substance: OCRELIZUMAB
     Indication: RELAPSING MULTIPLE SCLEROSIS
     Route: 065
     Dates: start: 201804
  2. INSULIN [Concomitant]
     Active Substance: INSULIN NOS
  3. OCREVUS [Suspect]
     Active Substance: OCRELIZUMAB
     Indication: MULTIPLE SCLEROSIS
     Dosage: 12/APR/2018, 26/APR/2018, 26/OCT/2018
     Route: 065
     Dates: start: 201804

REACTIONS (1)
  - Pregnancy [Unknown]
